FAERS Safety Report 8581164 (Version 5)
Quarter: 2014Q2

REPORT INFORMATION
  Report Type: Spontaneous
  Country: US (occurrence: US)
  Receive Date: 20120525
  Receipt Date: 20140422
  Transmission Date: 20141212
  Serious: Yes (Disabling, Other)
  Sender: FDA-Public Use
  Company Number: US-009507513-1205USA02862

PATIENT
  Sex: Female
  Weight: 67.12 kg

DRUGS (5)
  1. FOSAMAX [Suspect]
     Indication: OSTEOPOROSIS
     Dosage: 70 MG, QW
     Route: 048
     Dates: start: 20071030, end: 20110522
  2. ACTONEL [Suspect]
     Indication: OSTEOPOROSIS
     Dosage: 35 MG, UNK
     Route: 048
     Dates: start: 20070727, end: 20071128
  3. TOPROL XL TABLETS [Concomitant]
     Indication: HYPERTENSION
     Dosage: 50-100 MG QD
  4. DIOVAN HCT [Concomitant]
     Indication: HYPERTENSION
     Dosage: 160/25 MG QD
  5. PROTONIX [Concomitant]
     Dosage: 40 MG, UNK
     Route: 048
     Dates: start: 200309

REACTIONS (26)
  - Femur fracture [Not Recovered/Not Resolved]
  - Myocardial infarction [Unknown]
  - Device failure [Unknown]
  - Device failure [Unknown]
  - Device failure [Unknown]
  - Device breakage [Not Recovered/Not Resolved]
  - Acetabulum fracture [Unknown]
  - Device dislocation [Unknown]
  - Arteriosclerosis coronary artery [Unknown]
  - Type V hyperlipidaemia [Unknown]
  - Major depression [Unknown]
  - Hypertensive heart disease [Unknown]
  - Osteoarthritis [Unknown]
  - Cataract [Unknown]
  - QRS axis abnormal [Unknown]
  - Cough [Unknown]
  - Cataract [Unknown]
  - Angina pectoris [Unknown]
  - Rotator cuff syndrome [Unknown]
  - Memory impairment [Unknown]
  - Insomnia [Unknown]
  - Decreased appetite [Unknown]
  - Spinal osteoarthritis [Unknown]
  - Dementia Alzheimer^s type [Unknown]
  - Gastrooesophageal reflux disease [Unknown]
  - Gastrooesophageal reflux disease [Unknown]
